FAERS Safety Report 21737698 (Version 2)
Quarter: 2022Q4

REPORT INFORMATION
  Report Type: Spontaneous
  Country: ES (occurrence: ES)
  Receive Date: 20221216
  Receipt Date: 20221223
  Transmission Date: 20230112
  Serious: Yes (Hospitalization, Other)
  Sender: FDA-Public Use
  Company Number: ES-002147023-NVSC2022ES265695

PATIENT
  Sex: Male

DRUGS (10)
  1. ATENOLOL [Suspect]
     Active Substance: ATENOLOL
     Indication: Foetal exposure during pregnancy
     Dosage: MATERNAL DOSE AT EXPOSURE: UNK
     Route: 064
  2. BUPIVACAINE [Suspect]
     Active Substance: BUPIVACAINE
     Indication: Foetal exposure during pregnancy
     Dosage: 1.2 MILLILITER
     Route: 064
  3. BUPIVACAINE [Suspect]
     Active Substance: BUPIVACAINE
     Dosage: MATERNAL DOSE AT EXPOSURE: 120 ML
     Route: 065
  4. FLECAINIDE [Suspect]
     Active Substance: FLECAINIDE
     Indication: Foetal exposure during pregnancy
     Dosage: 100 MILLIGRAM, ONCE A DAY (50 MG, BID)
     Route: 064
  5. METOPROLOL [Suspect]
     Active Substance: METOPROLOL
     Indication: Foetal exposure during pregnancy
     Dosage: 100 MILLIGRAM, ONCE A DAY (50 MG, BID)
     Route: 064
  6. BETAMETHASONE [Suspect]
     Active Substance: BETAMETHASONE
     Indication: Foetal exposure during pregnancy
     Dosage: UNK, 1 TOTAL (ONCE/SINGLE)
     Route: 064
  7. CLINDAMYCIN [Suspect]
     Active Substance: CLINDAMYCIN
     Indication: Foetal exposure during pregnancy
     Dosage: 600 MG (30 MINUTES BEFORE THE CESAREAN SECTION)
     Route: 064
  8. GENTAMICIN [Suspect]
     Active Substance: GENTAMICIN
     Indication: Foetal exposure during pregnancy
     Dosage: 120 MG (30 MINUTES BEFORE THE CESAREAN SECTION)
     Route: 064
  9. LIDOCAINE [Suspect]
     Active Substance: LIDOCAINE
     Indication: Foetal exposure during pregnancy
     Dosage: 4 MILLILITER
     Route: 064
  10. PROGESTERONE [Suspect]
     Active Substance: PROGESTERONE
     Indication: Foetal exposure during pregnancy
     Dosage: 200 MILLIGRAM, ONCE A DAY
     Route: 064

REACTIONS (4)
  - Premature baby [Unknown]
  - Low birth weight baby [Unknown]
  - Neonatal respiratory distress syndrome [Recovered/Resolved]
  - Foetal exposure during pregnancy [Unknown]
